FAERS Safety Report 18350211 (Version 1)
Quarter: 2020Q4

REPORT INFORMATION
  Report Type: Spontaneous
  Country: CA (occurrence: CA)
  Receive Date: 20201006
  Receipt Date: 20201006
  Transmission Date: 20210114
  Serious: Yes (Other)
  Sender: FDA-Public Use
  Company Number: CA-TEVA-2020-CA-1835418

PATIENT
  Age: 75 Year
  Sex: Female

DRUGS (1)
  1. METHOTREXATE. [Suspect]
     Active Substance: METHOTREXATE
     Indication: PRODUCT USED FOR UNKNOWN INDICATION
     Route: 065

REACTIONS (5)
  - Poor quality sleep [Unknown]
  - Rheumatoid arthritis [Unknown]
  - Musculoskeletal stiffness [Unknown]
  - Gait disturbance [Unknown]
  - Pain [Unknown]
